FAERS Safety Report 8581772-1 (Version None)
Quarter: 2012Q3

REPORT INFORMATION
  Report Type: 
  Country: None (occurrence: None)
  Receive Date: 20120809
  Receipt Date: 20120807
  Transmission Date: 20120928
  Serious: Yes (Other)
  Sender: FDA-Public Use
  Company Number: PHEH2012US015452

PATIENT
  Sex: Female
  Weight: 60.771 kg

DRUGS (1)
  1. GILENYA [Suspect]
     Indication: MULTIPLE SCLEROSIS
     Dosage: 1 DF, QD
     Route: 048
     Dates: start: 20120802

REACTIONS (8)
  - MEMORY IMPAIRMENT [None]
  - CHROMATURIA [None]
  - BACK PAIN [None]
  - FATIGUE [None]
  - ABNORMAL DREAMS [None]
  - FALL [None]
  - HEADACHE [None]
  - DIARRHOEA [None]
